FAERS Safety Report 6345107-7 (Version None)
Quarter: 2009Q3

REPORT INFORMATION
  Report Type: 
  Country: None (occurrence: None)
  Receive Date: 20090909
  Receipt Date: 20070828
  Transmission Date: 20100115
  Serious: Yes (Other)
  Sender: FDA-Public Use
  Company Number: US-ASTRAZENECA-2006UW24251

PATIENT
  Age: 21694 Day
  Sex: Male
  Weight: 89.8 kg

DRUGS (3)
  1. SEROQUEL [Suspect]
     Route: 048
     Dates: start: 20011004
  2. LORAZEPAM [Concomitant]
     Route: 048
     Dates: start: 20011003
  3. VALIUM [Concomitant]
     Route: 048
     Dates: start: 20010622

REACTIONS (4)
  - DIABETES MELLITUS [None]
  - DIABETIC NEUROPATHY [None]
  - HYPERGLYCAEMIA [None]
  - NEUROPATHY PERIPHERAL [None]
